FAERS Safety Report 9158222 (Version 3)
Quarter: 2017Q4

REPORT INFORMATION
  Report Type: Report from Study
  Country: FR (occurrence: FR)
  Receive Date: 20130312
  Receipt Date: 20171218
  Transmission Date: 20180321
  Serious: Yes (Hospitalization, Other)
  Sender: FDA-Public Use
  Company Number: FR-ROCHE-1199500

PATIENT
  Age: 64 Year
  Sex: Female
  Weight: 79 kg

DRUGS (106)
  1. TOCILIZUMAB. [Suspect]
     Active Substance: TOCILIZUMAB
     Route: 042
     Dates: start: 20120112
  2. TOCILIZUMAB. [Suspect]
     Active Substance: TOCILIZUMAB
     Route: 042
     Dates: start: 20120515
  3. TOCILIZUMAB. [Suspect]
     Active Substance: TOCILIZUMAB
     Route: 042
     Dates: start: 20120719
  4. TOCILIZUMAB. [Suspect]
     Active Substance: TOCILIZUMAB
     Route: 042
     Dates: start: 20121019
  5. TOCILIZUMAB. [Suspect]
     Active Substance: TOCILIZUMAB
     Route: 042
     Dates: start: 20121119
  6. TOCILIZUMAB. [Suspect]
     Active Substance: TOCILIZUMAB
     Route: 042
     Dates: start: 20130114
  7. TOCILIZUMAB. [Suspect]
     Active Substance: TOCILIZUMAB
     Route: 042
     Dates: start: 20130211
  8. TOCILIZUMAB. [Suspect]
     Active Substance: TOCILIZUMAB
     Route: 042
     Dates: start: 20130610
  9. TOCILIZUMAB. [Suspect]
     Active Substance: TOCILIZUMAB
     Route: 042
     Dates: start: 20130716
  10. TOCILIZUMAB. [Suspect]
     Active Substance: TOCILIZUMAB
     Route: 042
     Dates: start: 20140306
  11. TOCILIZUMAB. [Suspect]
     Active Substance: TOCILIZUMAB
     Route: 042
     Dates: start: 20140630
  12. TOCILIZUMAB. [Suspect]
     Active Substance: TOCILIZUMAB
     Route: 042
     Dates: start: 20150130
  13. CORTANCYL [Concomitant]
     Active Substance: PREDNISONE
     Route: 065
     Dates: start: 2000
  14. CORTANCYL [Concomitant]
     Active Substance: PREDNISONE
     Route: 065
     Dates: start: 20100709
  15. CORTANCYL [Concomitant]
     Active Substance: PREDNISONE
     Route: 065
     Dates: start: 20101224
  16. METHOTREXATE. [Concomitant]
     Active Substance: METHOTREXATE
     Dosage: 20 MG/WEEK
     Route: 065
     Dates: start: 20100903
  17. METHOTREXATE. [Concomitant]
     Active Substance: METHOTREXATE
     Dosage: 15 MG/WEEK
     Route: 065
     Dates: start: 20120112
  18. TOCILIZUMAB. [Suspect]
     Active Substance: TOCILIZUMAB
     Route: 042
     Dates: start: 20110121
  19. TOCILIZUMAB. [Suspect]
     Active Substance: TOCILIZUMAB
     Route: 042
     Dates: start: 20110909
  20. TOCILIZUMAB. [Suspect]
     Active Substance: TOCILIZUMAB
     Route: 042
     Dates: start: 20120308
  21. TOCILIZUMAB. [Suspect]
     Active Substance: TOCILIZUMAB
     Route: 042
     Dates: start: 20120621
  22. TOCILIZUMAB. [Suspect]
     Active Substance: TOCILIZUMAB
     Route: 042
     Dates: start: 20130411
  23. TOCILIZUMAB. [Suspect]
     Active Substance: TOCILIZUMAB
     Route: 042
     Dates: start: 20141107
  24. TOCILIZUMAB. [Suspect]
     Active Substance: TOCILIZUMAB
     Route: 042
     Dates: start: 20150105
  25. CORTANCYL [Concomitant]
     Active Substance: PREDNISONE
     Route: 065
     Dates: start: 20110909
  26. CORTANCYL [Concomitant]
     Active Substance: PREDNISONE
     Dosage: ON 19/JUL/2012, 16/AUG/2012,12/SEP/2012, 19/OCT/2012, 19/NOV/2012,17/DEC/2012 (1 MG/DAY)
     Route: 065
  27. CORTANCYL [Concomitant]
     Active Substance: PREDNISONE
     Dosage: ON 10/MAY/2013, 11/APR/2013, 11/MAR/2013,11/FEB/2013,14/JAN/2013,10/JUN/2013 (10 MG/DAY)
     Route: 065
  28. METHOTREXATE. [Concomitant]
     Active Substance: METHOTREXATE
     Dosage: 20 MG/WEEK
     Route: 065
     Dates: start: 20100709
  29. METHOTREXATE. [Concomitant]
     Active Substance: METHOTREXATE
     Dosage: 20 MG/WEEK
     Route: 065
     Dates: start: 20100806
  30. METHOTREXATE. [Concomitant]
     Active Substance: METHOTREXATE
     Dosage: ON 05/JAN/2015, 30/JAN/2015, AND 31/MAR/2015 METHOTREXATE (20 MG/WEEK).
     Route: 065
  31. INEXIUM [Concomitant]
     Active Substance: ESOMEPRAZOLE
     Route: 065
  32. TOCILIZUMAB. [Suspect]
     Active Substance: TOCILIZUMAB
     Route: 042
     Dates: start: 20100903
  33. TOCILIZUMAB. [Suspect]
     Active Substance: TOCILIZUMAB
     Dosage: 4 MG/KG
     Route: 042
     Dates: start: 20101029
  34. TOCILIZUMAB. [Suspect]
     Active Substance: TOCILIZUMAB
     Route: 042
     Dates: start: 20101126
  35. TOCILIZUMAB. [Suspect]
     Active Substance: TOCILIZUMAB
     Route: 042
     Dates: start: 20130820
  36. TOCILIZUMAB. [Suspect]
     Active Substance: TOCILIZUMAB
     Dosage: 11/DEC/2013: TRANSIENT DISCONTINUATION (TOTAL INFUSIONS: 36).
     Route: 042
     Dates: start: 20131113, end: 20131211
  37. TOCILIZUMAB. [Suspect]
     Active Substance: TOCILIZUMAB
     Route: 042
     Dates: start: 20140814
  38. METHOTREXATE. [Concomitant]
     Active Substance: METHOTREXATE
     Dosage: 20 MG/WEEK
     Route: 065
     Dates: start: 20101126
  39. METHOTREXATE. [Concomitant]
     Active Substance: METHOTREXATE
     Dosage: 15 MG/WEEK
     Route: 065
     Dates: start: 20120515
  40. METHOTREXATE. [Concomitant]
     Active Substance: METHOTREXATE
     Dosage: ON 19/JUL/2012, 16/AUG/2012,12/SEP/2012, 19/OCT/2012, 19/NOV/2012 (15 MG/WEEK)
     Route: 065
  41. AMLOR [Concomitant]
     Active Substance: AMLODIPINE BESYLATE
     Route: 065
  42. TOCILIZUMAB. [Suspect]
     Active Substance: TOCILIZUMAB
     Indication: RHEUMATOID ARTHRITIS
     Route: 042
     Dates: start: 20100709
  43. TOCILIZUMAB. [Suspect]
     Active Substance: TOCILIZUMAB
     Route: 042
     Dates: start: 20101224
  44. TOCILIZUMAB. [Suspect]
     Active Substance: TOCILIZUMAB
     Route: 042
     Dates: start: 20110318
  45. TOCILIZUMAB. [Suspect]
     Active Substance: TOCILIZUMAB
     Route: 042
     Dates: start: 20110804
  46. TOCILIZUMAB. [Suspect]
     Active Substance: TOCILIZUMAB
     Route: 042
     Dates: start: 20120209
  47. TOCILIZUMAB. [Suspect]
     Active Substance: TOCILIZUMAB
     Route: 042
     Dates: start: 20120412
  48. TOCILIZUMAB. [Suspect]
     Active Substance: TOCILIZUMAB
     Route: 042
     Dates: start: 20130510
  49. TOCILIZUMAB. [Suspect]
     Active Substance: TOCILIZUMAB
     Route: 042
     Dates: start: 20140602
  50. TOCILIZUMAB. [Suspect]
     Active Substance: TOCILIZUMAB
     Route: 042
     Dates: start: 20141010
  51. CORTANCYL [Concomitant]
     Active Substance: PREDNISONE
     Route: 065
     Dates: start: 20100806
  52. CORTANCYL [Concomitant]
     Active Substance: PREDNISONE
     Route: 065
     Dates: start: 20110415
  53. CORTANCYL [Concomitant]
     Active Substance: PREDNISONE
     Route: 065
     Dates: start: 20120112
  54. CORTANCYL [Concomitant]
     Active Substance: PREDNISONE
     Route: 065
     Dates: start: 20120515
  55. METHOTREXATE. [Concomitant]
     Active Substance: METHOTREXATE
     Dosage: 20 MG/WEEK
     Route: 065
     Dates: start: 20110218
  56. METHOTREXATE. [Concomitant]
     Active Substance: METHOTREXATE
     Dosage: 10 MG/WEEK
     Route: 065
     Dates: start: 20120621
  57. SPECIAFOLDINE [Concomitant]
     Active Substance: FOLIC ACID
     Dosage: 10 MG/ WEEK
     Route: 065
  58. ACTONEL [Concomitant]
     Active Substance: RISEDRONATE SODIUM
     Route: 065
  59. TOCILIZUMAB. [Suspect]
     Active Substance: TOCILIZUMAB
     Route: 042
     Dates: start: 20131016
  60. TOCILIZUMAB. [Suspect]
     Active Substance: TOCILIZUMAB
     Route: 042
     Dates: start: 20140403
  61. CORTANCYL [Concomitant]
     Active Substance: PREDNISONE
     Route: 065
     Dates: start: 20120621
  62. METHOTREXATE. [Concomitant]
     Active Substance: METHOTREXATE
     Dosage: 20 MG/WEEK
     Route: 065
     Dates: start: 20101029
  63. METHOTREXATE. [Concomitant]
     Active Substance: METHOTREXATE
     Dosage: 20 MG/WEEK
     Route: 065
     Dates: start: 20101224
  64. METHOTREXATE. [Concomitant]
     Active Substance: METHOTREXATE
     Dosage: 15 MG/WEEK
     Route: 065
     Dates: start: 20120209
  65. SPECIAFOLDINE [Concomitant]
     Active Substance: FOLIC ACID
     Dosage: 2/WEEK
     Route: 065
  66. HYDROCORTANCYL [Concomitant]
     Active Substance: PREDNISONE
  67. TOCILIZUMAB. [Suspect]
     Active Substance: TOCILIZUMAB
     Route: 042
     Dates: start: 20100806
  68. TOCILIZUMAB. [Suspect]
     Active Substance: TOCILIZUMAB
     Route: 042
     Dates: start: 20110218
  69. TOCILIZUMAB. [Suspect]
     Active Substance: TOCILIZUMAB
     Route: 042
     Dates: start: 20110415
  70. TOCILIZUMAB. [Suspect]
     Active Substance: TOCILIZUMAB
     Route: 042
     Dates: start: 20110707
  71. TOCILIZUMAB. [Suspect]
     Active Substance: TOCILIZUMAB
     Route: 042
     Dates: start: 20120912
  72. TOCILIZUMAB. [Suspect]
     Active Substance: TOCILIZUMAB
     Route: 042
     Dates: start: 20121217
  73. TOCILIZUMAB. [Suspect]
     Active Substance: TOCILIZUMAB
     Route: 042
     Dates: start: 20141205
  74. TOCILIZUMAB. [Suspect]
     Active Substance: TOCILIZUMAB
     Dosage: 19/AUG/2015: TRANSIENT DISCONTINUATION (TOTAL INFUSIONS: 50).
     Route: 042
     Dates: start: 20150331, end: 20150819
  75. CORTANCYL [Concomitant]
     Active Substance: PREDNISONE
     Route: 065
     Dates: start: 20100903
  76. CORTANCYL [Concomitant]
     Active Substance: PREDNISONE
     Route: 065
     Dates: start: 20101029
  77. CORTANCYL [Concomitant]
     Active Substance: PREDNISONE
     Route: 065
     Dates: start: 20120209
  78. CORTANCYL [Concomitant]
     Active Substance: PREDNISONE
     Route: 065
     Dates: start: 20120412
  79. METHOTREXATE. [Concomitant]
     Active Substance: METHOTREXATE
     Dosage: 15 MG/WEEK
     Route: 065
     Dates: start: 20110804
  80. METHOTREXATE. [Concomitant]
     Active Substance: METHOTREXATE
     Dosage: 15 MG/WEEK
     Route: 065
     Dates: start: 20120308
  81. RASILEZ [Concomitant]
     Active Substance: ALISKIREN
     Dosage: 300/12.5
     Route: 065
  82. TOCILIZUMAB. [Suspect]
     Active Substance: TOCILIZUMAB
     Route: 042
     Dates: start: 20120816
  83. TOCILIZUMAB. [Suspect]
     Active Substance: TOCILIZUMAB
     Route: 042
     Dates: start: 20130311
  84. TOCILIZUMAB. [Suspect]
     Active Substance: TOCILIZUMAB
     Route: 042
     Dates: start: 20130917
  85. TOCILIZUMAB. [Suspect]
     Active Substance: TOCILIZUMAB
     Route: 042
     Dates: start: 20140120
  86. TOCILIZUMAB. [Suspect]
     Active Substance: TOCILIZUMAB
     Route: 042
     Dates: start: 20140502
  87. CORTANCYL [Concomitant]
     Active Substance: PREDNISONE
     Route: 065
     Dates: start: 20101126
  88. CORTANCYL [Concomitant]
     Active Substance: PREDNISONE
     Route: 065
     Dates: start: 20110218
  89. CORTANCYL [Concomitant]
     Active Substance: PREDNISONE
     Route: 065
     Dates: start: 20110318
  90. CORTANCYL [Concomitant]
     Active Substance: PREDNISONE
     Route: 065
     Dates: start: 20110804
  91. CORTANCYL [Concomitant]
     Active Substance: PREDNISONE
     Route: 065
     Dates: start: 20120308
  92. METHOTREXATE. [Concomitant]
     Active Substance: METHOTREXATE
     Dosage: 15 MG/WEEK
     Route: 065
     Dates: start: 20120412
  93. METHOTREXATE. [Concomitant]
     Active Substance: METHOTREXATE
     Dosage: 16/JUL/2013, 20/AUG/2013, 17/SEP/2013, 16/OCT/2013, AND 13/NOV/2013 METHOTREXATE (15 MG/WEEK)
     Route: 065
  94. METHOTREXATE. [Concomitant]
     Active Substance: METHOTREXATE
     Dosage: 20/JAN/2014, 06/MAR/2014, 03/APR/2014, 02/MAY/2014, 02/JUN/2014, METHOTREXATE (15 MG/WEEK).
     Route: 065
  95. TOCILIZUMAB. [Suspect]
     Active Substance: TOCILIZUMAB
     Route: 042
     Dates: start: 20140912
  96. CORTANCYL [Concomitant]
     Active Substance: PREDNISONE
     Route: 065
     Dates: start: 20110121
  97. CORTANCYL [Concomitant]
     Active Substance: PREDNISONE
     Route: 065
     Dates: start: 20110707
  98. CORTANCYL [Concomitant]
     Active Substance: PREDNISONE
     Route: 065
     Dates: start: 20120621
  99. METHOTREXATE. [Concomitant]
     Active Substance: METHOTREXATE
     Dosage: 20 MG/WEEK
     Route: 065
     Dates: start: 20110121
  100. METHOTREXATE. [Concomitant]
     Active Substance: METHOTREXATE
     Dosage: 20 MG/WEEK
     Route: 065
     Dates: start: 20110318
  101. METHOTREXATE. [Concomitant]
     Active Substance: METHOTREXATE
     Dosage: 20 MG/WEEK
     Route: 065
     Dates: start: 20110415
  102. METHOTREXATE. [Concomitant]
     Active Substance: METHOTREXATE
     Dosage: 20 MG/WEEK
     Route: 065
     Dates: start: 20110707
  103. METHOTREXATE. [Concomitant]
     Active Substance: METHOTREXATE
     Dosage: 15 MG/WEEK
     Route: 065
     Dates: start: 20110909
  104. METHOTREXATE. [Concomitant]
     Active Substance: METHOTREXATE
     Dosage: 15 MG/WEEK
     Route: 065
     Dates: start: 20120621
  105. METHOTREXATE. [Concomitant]
     Active Substance: METHOTREXATE
     Dosage: ON 10/MAY/2013, 11/APR/2013, 11/MAR/2013,11/FEB/2013,14/JAN/2013,10/JUN/2013 (15 MG / WEEK)
     Route: 065
  106. METHOTREXATE. [Concomitant]
     Active Substance: METHOTREXATE
     Dosage: ON 30/JUN/2014, 14/AUG/2014, 12/SEP/2014, 10/OCT/2014, 07/NOV/2014, AND 05/DEC/2014 METHOTREXATE (20
     Route: 065

REACTIONS (9)
  - Bronchitis [Recovered/Resolved]
  - Neutropenia [Recovered/Resolved]
  - Diabetes mellitus [Not Recovered/Not Resolved]
  - Neutropenia [Not Recovered/Not Resolved]
  - Septic arthritis staphylococcal [Recovered/Resolved]
  - Skin infection [Not Recovered/Not Resolved]
  - Tooth extraction [Recovered/Resolved]
  - Leukopenia [Not Recovered/Not Resolved]
  - Tooth disorder [Recovered/Resolved]

NARRATIVE: CASE EVENT DATE: 20101001
